FAERS Safety Report 7417647-0 (Version None)
Quarter: 2011Q2

REPORT INFORMATION
  Report Type: 
  Country: None (occurrence: None)
  Receive Date: 20110415
  Receipt Date: 20110405
  Transmission Date: 20111010
  Serious: Yes (Disabling, Other)
  Sender: FDA-Public Use
  Company Number: JP-ABBOTT-11P-087-0715263-00

PATIENT
  Age: 78 Year
  Sex: Male

DRUGS (1)
  1. SEVOFLURANE [Suspect]
     Indication: PRODUCT USED FOR UNKNOWN INDICATION

REACTIONS (4)
  - RESPIRATORY DEPRESSION [None]
  - HYPOXIC-ISCHAEMIC ENCEPHALOPATHY [None]
  - MENTAL IMPAIRMENT [None]
  - CARDIAC ARREST [None]
